FAERS Safety Report 14145483 (Version 2)
Quarter: 2017Q4

REPORT INFORMATION
  Report Type: Spontaneous
  Country: US (occurrence: US)
  Receive Date: 20171031
  Receipt Date: 20171103
  Transmission Date: 20180321
  Serious: Yes (Hospitalization, Other)
  Sender: FDA-Public Use
  Company Number: US-ASTRAZENECA-2017SF08703

PATIENT
  Age: 81 Year
  Sex: Female

DRUGS (6)
  1. ZESTRIL [Suspect]
     Active Substance: LISINOPRIL
     Route: 048
  2. LOSARTAN. [Concomitant]
     Active Substance: LOSARTAN
  3. BRILINTA [Suspect]
     Active Substance: TICAGRELOR
     Indication: MYOCARDIAL INFARCTION
     Route: 048
  4. ZYDELIG [Interacting]
     Active Substance: IDELALISIB
     Indication: CHRONIC LYMPHOCYTIC LEUKAEMIA
     Route: 048
     Dates: start: 20140825
  5. ZYDELIG [Interacting]
     Active Substance: IDELALISIB
     Indication: NON-HODGKIN^S LYMPHOMA
     Route: 048
     Dates: start: 20140825
  6. PLAVIX [Concomitant]
     Active Substance: CLOPIDOGREL BISULFATE

REACTIONS (3)
  - Drug interaction [Not Recovered/Not Resolved]
  - Cardiac failure congestive [Unknown]
  - Aortic stenosis [Unknown]

NARRATIVE: CASE EVENT DATE: 201708
